FAERS Safety Report 18250749 (Version 1)
Quarter: 2020Q3

REPORT INFORMATION
  Report Type: Spontaneous
  Country: US (occurrence: US)
  Receive Date: 20200910
  Receipt Date: 20200910
  Transmission Date: 20201103
  Serious: Yes (Hospitalization)
  Sender: FDA-Public Use
  Company Number: US-TEVA-2020-US-1825313

PATIENT
  Sex: Female

DRUGS (10)
  1. RISPERIDONE. [Suspect]
     Active Substance: RISPERIDONE
     Indication: BIPOLAR I DISORDER
     Route: 065
  2. ZIPRASIDONE. [Suspect]
     Active Substance: ZIPRASIDONE
     Indication: BIPOLAR I DISORDER
     Dosage: 40 MILLIGRAM DAILY;
     Route: 048
     Dates: start: 20181209, end: 20181215
  3. ARIPIPRAZOLE. [Suspect]
     Active Substance: ARIPIPRAZOLE
     Indication: BIPOLAR I DISORDER
     Dosage: 10 MILLIGRAM DAILY;
     Route: 048
     Dates: start: 20181220, end: 20190102
  4. DEUTETRABENAZINE [Suspect]
     Active Substance: DEUTETRABENAZINE
     Indication: TARDIVE DYSKINESIA
     Dosage: 12 MILLIGRAM DAILY; TABLETS WERE CRUSHED AND DISSOLVED IN 10 TO 20 ML OF STERILE WATER
     Route: 050
  5. QUETIAPINE. [Suspect]
     Active Substance: QUETIAPINE
     Indication: BIPOLAR I DISORDER
     Dosage: 800 MILLIGRAM DAILY;
     Route: 048
     Dates: start: 201609, end: 201610
  6. DEUTETRABENAZINE [Suspect]
     Active Substance: DEUTETRABENAZINE
     Dosage: TABLETS WERE CRUSHED AND DISSOLVED IN 10 TO 20 ML OF STERILE WATER
     Route: 050
  7. PALIPERIDONE. [Suspect]
     Active Substance: PALIPERIDONE
     Indication: BIPOLAR I DISORDER
     Route: 030
  8. VITAMIN E [Suspect]
     Active Substance: .ALPHA.-TOCOPHEROL
     Indication: TARDIVE DYSKINESIA
     Route: 065
  9. CLONAZEPAM. [Suspect]
     Active Substance: CLONAZEPAM
     Indication: TARDIVE DYSKINESIA
     Route: 065
  10. CARIPRAZINE [Suspect]
     Active Substance: CARIPRAZINE
     Indication: BIPOLAR I DISORDER
     Dosage: 1.5 MILLIGRAM DAILY;
     Route: 048
     Dates: start: 201609, end: 201610

REACTIONS (11)
  - Anaemia [Recovered/Resolved]
  - Blood albumin decreased [Recovered/Resolved]
  - Off label use [Unknown]
  - Aspiration [Recovered/Resolved]
  - Speech disorder [Recovered/Resolved]
  - Tardive dyskinesia [Recovered/Resolved]
  - Nutritional condition abnormal [Recovered/Resolved]
  - Dysphagia [Recovered/Resolved]
  - Treatment failure [Unknown]
  - Hypernatraemia [Recovered/Resolved]
  - Oral administration complication [Recovered/Resolved]
